FAERS Safety Report 15401194 (Version 1)
Quarter: 2018Q3

REPORT INFORMATION
  Report Type: Spontaneous
  Country: GB (occurrence: GB)
  Receive Date: 20180919
  Receipt Date: 20180919
  Transmission Date: 20181010
  Serious: Yes (Life-Threatening)
  Sender: FDA-Public Use
  Company Number: GB-TEVA-2018-GB-956087

PATIENT
  Age: 26 Year
  Sex: Female
  Weight: 89 kg

DRUGS (5)
  1. MORPHINE [Suspect]
     Active Substance: MORPHINE
     Dosage: 8.4 MG/ML
     Dates: start: 20180816
  2. NICOTINE. [Concomitant]
     Active Substance: NICOTINE
     Dosage: 1 DOSAGE FORMS DAILY;
     Route: 062
     Dates: start: 20180813, end: 20180816
  3. PARACETAMOL [Concomitant]
     Active Substance: ACETAMINOPHEN
     Dates: start: 20180821, end: 20180821
  4. SERTRALINE [Concomitant]
     Active Substance: SERTRALINE HYDROCHLORIDE
     Dates: start: 20180821
  5. SODIUM FLUORIDE. [Concomitant]
     Active Substance: SODIUM FLUORIDE
     Dosage: 5000PPM
     Dates: start: 20171013, end: 20180526

REACTIONS (1)
  - Dyspnoea [Unknown]

NARRATIVE: CASE EVENT DATE: 20180823
